FAERS Safety Report 4499637-3 (Version None)
Quarter: 2004Q4

REPORT INFORMATION
  Report Type: 
  Country: None (occurrence: None)
  Receive Date: 20041112
  Receipt Date: 20041103
  Transmission Date: 20050328
  Serious: Yes (Death)
  Sender: FDA-Public Use
  Company Number: SE-JNJFOC-20041102310

PATIENT
  Sex: Male

DRUGS (1)
  1. REOPRO [Suspect]
     Indication: INTRACARDIAC THROMBUS
     Route: 042

REACTIONS (4)
  - BRAIN COMPRESSION [None]
  - BRAIN OEDEMA [None]
  - COMA [None]
  - HAEMORRHAGE INTRACRANIAL [None]
